FAERS Safety Report 8340355-9 (Version None)
Quarter: 2012Q2

REPORT INFORMATION
  Report Type: 
  Country: None (occurrence: None)
  Receive Date: 20120507
  Receipt Date: 20120504
  Transmission Date: 20120825
  Serious: Yes (Hospitalization)
  Sender: FDA-Public Use
  Company Number: US-PFIZER INC-2012109865

PATIENT
  Sex: Female

DRUGS (1)
  1. FLECTOR [Suspect]
     Dosage: UNK

REACTIONS (4)
  - HEART VALVE INCOMPETENCE [None]
  - HYPERTENSION [None]
  - OEDEMA PERIPHERAL [None]
  - ARTHRITIS [None]
